FAERS Safety Report 25731281 (Version 1)
Quarter: 2025Q3

REPORT INFORMATION
  Report Type: Spontaneous
  Country: JP (occurrence: JP)
  Receive Date: 20250827
  Receipt Date: 20250827
  Transmission Date: 20251021
  Serious: Yes (Other)
  Sender: PFIZER
  Company Number: JP-PFIZER INC-PV202500100064

PATIENT
  Age: 39 Year
  Sex: Female

DRUGS (1)
  1. TOFACITINIB CITRATE [Suspect]
     Active Substance: TOFACITINIB CITRATE
     Indication: Colitis ulcerative
     Dosage: 10 MG, DAILY

REACTIONS (3)
  - Carotid artery occlusion [Recovering/Resolving]
  - Cerebral infarction [Recovering/Resolving]
  - Deep vein thrombosis [Unknown]
